FAERS Safety Report 17815017 (Version 5)
Quarter: 2020Q4

REPORT INFORMATION
  Report Type: Report from Study
  Country: US (occurrence: US)
  Receive Date: 20200522
  Receipt Date: 20201118
  Transmission Date: 20210113
  Serious: Yes (Life-Threatening, Hospitalization, Other)
  Sender: FDA-Public Use
  Company Number: US-SA-2020SA104871

PATIENT

DRUGS (35)
  1. LEVOFLOXACIN. [Concomitant]
     Active Substance: LEVOFLOXACIN
     Indication: COVID-19 PNEUMONIA
  2. SARILUMAB [Suspect]
     Active Substance: SARILUMAB
     Indication: COVID-19
     Dosage: 400 MG, 1X
     Route: 042
     Dates: start: 20200330, end: 20200330
  3. SARILUMAB [Suspect]
     Active Substance: SARILUMAB
     Dosage: 400 MG, 1X
     Route: 042
     Dates: start: 20200414, end: 20200414
  4. VASOPRESSIN. [Concomitant]
     Active Substance: VASOPRESSIN
     Indication: SHOCK
     Dosage: 0.04 UNITS/MIN
     Dates: start: 20200329, end: 20200329
  5. CEFTRIAXONE. [Concomitant]
     Active Substance: CEFTRIAXONE
     Indication: PNEUMONIA
     Dosage: 1000 MG, QD
     Route: 042
     Dates: start: 20200328, end: 20200404
  6. ZOSYN [Concomitant]
     Active Substance: PIPERACILLIN SODIUM\TAZOBACTAM SODIUM
     Indication: PNEUMONIA VIRAL
  7. ZOSYN [Concomitant]
     Active Substance: PIPERACILLIN SODIUM\TAZOBACTAM SODIUM
     Indication: COVID-19
  8. SARILUMAB [Suspect]
     Active Substance: SARILUMAB
     Dosage: 400 MG, 1X
     Route: 042
     Dates: start: 20200421, end: 20200421
  9. CEFTRIAXONE. [Concomitant]
     Active Substance: CEFTRIAXONE
     Indication: COVID-19
     Dosage: 2000 MG, QD
     Dates: start: 20200330, end: 20200331
  10. ACETAMINOPHEN. [Concomitant]
     Active Substance: ACETAMINOPHEN
     Indication: PYREXIA
     Dosage: 650 MG, PRN
     Dates: start: 20200329
  11. ACETAMINOPHEN. [Concomitant]
     Active Substance: ACETAMINOPHEN
     Indication: PYREXIA
     Dosage: 650 MG
     Dates: start: 20200329
  12. MERREM [Concomitant]
     Active Substance: MEROPENEM
     Indication: PNEUMONIA VIRAL
     Dosage: 1000 MG, Q8H
     Route: 042
     Dates: start: 20200413, end: 20200416
  13. ZOSYN [Concomitant]
     Active Substance: PIPERACILLIN SODIUM\TAZOBACTAM SODIUM
     Indication: PNEUMONIA VIRAL
     Dosage: 4.5 G, Q6H
     Route: 042
     Dates: start: 20200409, end: 20200413
  14. CASPOFUNGIN [Concomitant]
     Active Substance: CASPOFUNGIN
     Indication: FUNGAL INFECTION
     Dosage: 700 MG, SINGLE
     Dates: start: 20200428, end: 20200428
  15. EPIVIR [Concomitant]
     Active Substance: LAMIVUDINE
     Indication: HIV INFECTION
     Dosage: 150 MG, QID
     Dates: start: 20200329, end: 20200329
  16. CEFTRIAXONE. [Concomitant]
     Active Substance: CEFTRIAXONE
     Indication: COVID-19 PNEUMONIA
  17. VANCOMYCIN [Concomitant]
     Active Substance: VANCOMYCIN
     Dosage: 1000 MG BID
     Route: 042
     Dates: start: 20200504, end: 20200510
  18. MERREM [Concomitant]
     Active Substance: MEROPENEM
     Indication: COVID-19
  19. NOREPINEPHRINE. [Concomitant]
     Active Substance: NOREPINEPHRINE
     Dosage: 1-30MCG/MIN, CONTINUOUS INFUSION
     Route: 042
     Dates: start: 20200419
  20. HYDROXYCHLOROQUINE [Concomitant]
     Active Substance: HYDROXYCHLOROQUINE
     Dosage: 400 MG, QD
     Route: 048
     Dates: start: 20200330, end: 20200402
  21. MERREM [Concomitant]
     Active Substance: MEROPENEM
     Indication: PNEUMONIA VIRAL
  22. VANCOMYCIN [Concomitant]
     Active Substance: VANCOMYCIN
     Indication: COVID-19
     Dosage: 1500 MG, BID
     Route: 042
     Dates: start: 20200428, end: 20200429
  23. VANCOMYCIN [Concomitant]
     Active Substance: VANCOMYCIN
     Dosage: 1000 MG Q12H
     Route: 042
     Dates: start: 20200523, end: 20200528
  24. NOREPINEPHRINE. [Concomitant]
     Active Substance: NOREPINEPHRINE
     Indication: HYPOTENSION
     Dosage: 1-30 MCG/MIN
     Dates: start: 20200402, end: 20200420
  25. APIXABAN [Concomitant]
     Active Substance: APIXABAN
     Indication: DEEP VEIN THROMBOSIS
     Dosage: 25 MG, QID
     Route: 048
     Dates: start: 20200521
  26. HYDROXYCHLOROQUINE [Concomitant]
     Active Substance: HYDROXYCHLOROQUINE
     Indication: COVID-19
     Dosage: 400 MG, Q12H
     Route: 048
     Dates: start: 20200329, end: 20200330
  27. DESCOVY [Concomitant]
     Active Substance: EMTRICITABINE\TENOFOVIR ALAFENAMIDE FUMARATE
     Indication: HIV INFECTION
     Dosage: UNK
     Dates: start: 20200331
  28. DOLUTEGRAVIR [Concomitant]
     Active Substance: DOLUTEGRAVIR
     Indication: HIV INFECTION
     Dosage: 50 MG, QD
     Dates: start: 20200330
  29. ZOSYN [Concomitant]
     Active Substance: PIPERACILLIN SODIUM\TAZOBACTAM SODIUM
     Indication: COVID-19 PNEUMONIA
  30. CASPOFUNGIN [Concomitant]
     Active Substance: CASPOFUNGIN
     Dosage: 50 MG, QD
     Route: 042
     Dates: start: 20200429, end: 20200429
  31. LEVOFLOXACIN. [Concomitant]
     Active Substance: LEVOFLOXACIN
     Indication: PNEUMONIA
     Dosage: 500 MG, QOD
     Route: 042
     Dates: start: 20200329, end: 20200329
  32. LEVOFLOXACIN. [Concomitant]
     Active Substance: LEVOFLOXACIN
     Indication: COVID-19
  33. VANCOMYCIN [Concomitant]
     Active Substance: VANCOMYCIN
     Indication: PNEUMONIA VIRAL
     Dosage: 1250 MG, Q12H
     Route: 042
     Dates: start: 20200409, end: 20200414
  34. VANCOMYCIN [Concomitant]
     Active Substance: VANCOMYCIN
     Indication: PNEUMONIA VIRAL
     Dosage: 150 UNK, Q12H
     Route: 042
     Dates: start: 20200414, end: 20200416
  35. VANCOMYCIN [Concomitant]
     Active Substance: VANCOMYCIN
     Indication: PNEUMONIA BACTERIAL
     Dosage: 1250 MG BID
     Route: 042
     Dates: start: 20200430, end: 20200504

REACTIONS (7)
  - Gangrene [Not Recovered/Not Resolved]
  - Hypotension [Recovered/Resolved]
  - Aspartate aminotransferase increased [Recovered/Resolved]
  - Pneumonia bacterial [Not Recovered/Not Resolved]
  - Deep vein thrombosis [Not Recovered/Not Resolved]
  - Bacteraemia [Recovered/Resolved]
  - Alanine aminotransferase increased [Recovered/Resolved]

NARRATIVE: CASE EVENT DATE: 20200402
